FAERS Safety Report 9296474 (Version 2)
Quarter: 2014Q2

REPORT INFORMATION
  Report Type: Spontaneous
  Country: US (occurrence: US)
  Receive Date: 20130517
  Receipt Date: 20140529
  Transmission Date: 20141212
  Serious: No
  Sender: FDA-Public Use
  Company Number: US-009507513-1305USA002130

PATIENT
  Sex: Male

DRUGS (8)
  1. MIRALAX [Suspect]
     Indication: CONSTIPATION
     Dosage: UNK UNK, UNKNOWN
     Route: 048
     Dates: start: 2002, end: 2013
  2. MIRALAX [Suspect]
     Indication: MEDICAL OBSERVATION
  3. PREDNISONE [Concomitant]
     Indication: TEMPORAL ARTERITIS
     Dosage: UNK, UNKNOWN
  4. FOLIC ACID [Concomitant]
     Indication: OSTEOPOROSIS
     Dosage: UNK, UNKNOWN
  5. CALCIUM (UNSPECIFIED) [Concomitant]
     Indication: OSTEOPOROSIS
     Dosage: UNK, UNKNOWN
  6. VITAMIN D (UNSPECIFIED) [Concomitant]
     Indication: OSTEOPOROSIS
     Dosage: UNK, UNKNOWN
  7. IPRATROPIUM BROMIDE [Concomitant]
     Indication: PRODUCT USED FOR UNKNOWN INDICATION
     Dosage: UNK, UNKNOWN
  8. FLUTICASONE [Concomitant]
     Indication: PRODUCT USED FOR UNKNOWN INDICATION
     Dosage: UNK, UNKNOWN

REACTIONS (5)
  - Haematochezia [Unknown]
  - Diarrhoea [Unknown]
  - Intercepted medication error [Unknown]
  - Incorrect drug administration duration [Unknown]
  - Off label use [Unknown]
